FAERS Safety Report 7009544-X (Version None)
Quarter: 2010Q3

REPORT INFORMATION
  Report Type: 
  Country: None (occurrence: None)
  Receive Date: 20100923
  Receipt Date: 20100917
  Transmission Date: 20110219
  Serious: Yes (Hospitalization, Other)
  Sender: FDA-Public Use
  Company Number: PHHY2010US59150

PATIENT
  Sex: Male
  Weight: 77.551 kg

DRUGS (14)
  1. FORADIL [Suspect]
     Indication: HYPERSENSITIVITY
     Dosage: 12 UG, BID
     Dates: start: 20080609, end: 20080610
  2. FORADIL [Suspect]
     Indication: ASTHMA
  3. PREDNISONE [Concomitant]
     Route: 048
  4. SEREVENT [Concomitant]
  5. NASONEX [Concomitant]
     Route: 048
  6. NASACORT [Concomitant]
     Route: 048
  7. ASMANEX TWISTHALER [Concomitant]
     Indication: ASTHMA
     Dosage: UNK
  8. ALBUTEROL [Concomitant]
     Indication: ASTHMA
     Dosage: UNK
  9. XYZAL [Concomitant]
     Indication: HYPERSENSITIVITY
     Dosage: UNK
     Route: 048
  10. MUCINEX [Concomitant]
  11. PULMICORT [Concomitant]
  12. CLONIDINE [Concomitant]
     Route: 062
  13. DIOVAN [Concomitant]
  14. ACIPHEX [Concomitant]

REACTIONS (6)
  - CARDIAC INFECTION [None]
  - CHEST DISCOMFORT [None]
  - ENDOCARDITIS [None]
  - EPISTAXIS [None]
  - STAPHYLOCOCCAL INFECTION [None]
  - THROAT IRRITATION [None]
